FAERS Safety Report 25842010 (Version 1)
Quarter: 2025Q3

REPORT INFORMATION
  Report Type: Spontaneous
  Country: US (occurrence: None)
  Receive Date: 20250924
  Receipt Date: 20250924
  Transmission Date: 20251020
  Serious: Yes (Life-Threatening)
  Sender: FDA-CTU
  Company Number: None

PATIENT
  Age: 58 Year
  Sex: Female
  Weight: 48 kg

DRUGS (1)
  1. FERAHEME [Suspect]
     Active Substance: FERUMOXYTOL NON-STOICHIOMETRIC MAGNETITE

REACTIONS (4)
  - Haemolytic transfusion reaction [None]
  - Poor quality product administered [None]
  - Product colour issue [None]
  - Product label issue [None]

NARRATIVE: CASE EVENT DATE: 20250923
